FAERS Safety Report 7006529-4 (Version None)
Quarter: 2010Q3

REPORT INFORMATION
  Report Type: 
  Country: None (occurrence: None)
  Receive Date: 20100921
  Receipt Date: 20100921
  Transmission Date: 20110219
  Serious: Yes (Death, Hospitalization)
  Sender: FDA-Public Use
  Company Number: None

PATIENT
  Sex: Male
  Weight: 71 kg

DRUGS (17)
  1. DASATINIB 50 MG12 BRISTOL MYERS SQUIBB [Suspect]
     Indication: PROSTATE CANCER
     Dosage: 100 MG DAILY PO ; OFF STUDY X 2 WEEKS
     Route: 048
     Dates: start: 20100804, end: 20100830
  2. ELIGARD [Concomitant]
  3. HYDROCHLOROTHIAZIDE [Concomitant]
  4. DIGOXIN [Concomitant]
  5. LISINOPRIL [Concomitant]
  6. TERAZOSIN HCL [Concomitant]
  7. ZETIA [Concomitant]
  8. ASPIRIN [Concomitant]
  9. XANAX [Concomitant]
  10. M.V.I. [Concomitant]
  11. FISH OIL [Concomitant]
  12. TRILIPIX [Concomitant]
  13. OXYCONTIN [Concomitant]
  14. VITAMIN D [Concomitant]
  15. ZOMETA [Concomitant]
  16. PLAVIX [Concomitant]
  17. GLIMEPIRIDE [Concomitant]

REACTIONS (10)
  - ATRIAL FIBRILLATION [None]
  - GENERAL PHYSICAL HEALTH DETERIORATION [None]
  - HAEMATURIA [None]
  - HEART RATE INCREASED [None]
  - LETHARGY [None]
  - NEUROPATHY PERIPHERAL [None]
  - RENAL FAILURE ACUTE [None]
  - SOMNOLENCE [None]
  - THROMBOCYTOPENIA [None]
  - WHITE BLOOD CELL COUNT DECREASED [None]
